FAERS Safety Report 16004251 (Version 3)
Quarter: 2019Q1

REPORT INFORMATION
  Report Type: Spontaneous
  Country: US (occurrence: US)
  Receive Date: 20190226
  Receipt Date: 20190304
  Transmission Date: 20190418
  Serious: Yes (Hospitalization)
  Sender: FDA-Public Use
  Company Number: US-ROCHE-2271812

PATIENT
  Age: 59 Year
  Sex: Female

DRUGS (5)
  1. PREDNISONE. [Concomitant]
     Active Substance: PREDNISONE
  2. PULMICORT TURBUHALER [Concomitant]
     Active Substance: BUDESONIDE
  3. ALBUTEROL. [Concomitant]
     Active Substance: ALBUTEROL
  4. CROMOLYN [Concomitant]
     Active Substance: CROMOLYN
  5. XOLAIR [Suspect]
     Active Substance: OMALIZUMAB
     Indication: ASTHMA
     Route: 058

REACTIONS (2)
  - Respiratory syncytial virus infection [Recovering/Resolving]
  - Pneumonia [Recovering/Resolving]

NARRATIVE: CASE EVENT DATE: 20190215
